FAERS Safety Report 7406619-8 (Version None)
Quarter: 2011Q2

REPORT INFORMATION
  Report Type: 
  Country: None (occurrence: None)
  Receive Date: 20110406
  Receipt Date: 20110406
  Transmission Date: 20111010
  Serious: Yes (Death, Hospitalization)
  Sender: FDA-Public Use
  Company Number: None

PATIENT
  Age: 23 Year
  Sex: Female

DRUGS (4)
  1. EFFEXOR XR [Suspect]
     Indication: DEPRESSION
     Dosage: 225MG DAILY ORAL
     Route: 048
     Dates: start: 20110301
  2. EFFEXOR XR [Suspect]
     Indication: POST-TRAUMATIC STRESS DISORDER
     Dosage: 225MG DAILY ORAL
     Route: 048
     Dates: start: 20110301
  3. MONSTER ENERGY DRINK [Suspect]
     Indication: DEPRESSION
     Dosage: 100MG DAILY ORAL
     Route: 048
     Dates: start: 20110301
  4. MONSTER ENERGY DRINK [Suspect]
     Indication: POST-TRAUMATIC STRESS DISORDER
     Dosage: 100MG DAILY ORAL
     Route: 048
     Dates: start: 20110301

REACTIONS (9)
  - DRUG INTERACTION [None]
  - ANXIETY [None]
  - AGITATION [None]
  - FLUSHING [None]
  - MYDRIASIS [None]
  - HEADACHE [None]
  - SEROTONIN SYNDROME [None]
  - TACHYCARDIA [None]
  - HYPERTENSION [None]
